FAERS Safety Report 14638111 (Version 1)
Quarter: 2018Q1

REPORT INFORMATION
  Report Type: Spontaneous
  Country: US (occurrence: US)
  Receive Date: 20180314
  Receipt Date: 20180314
  Transmission Date: 20180509
  Serious: Yes (Other)
  Sender: FDA-Public Use
  Company Number: None

PATIENT
  Age: 41 Year
  Sex: Female
  Weight: 67.5 kg

DRUGS (9)
  1. MIRENA [Suspect]
     Active Substance: LEVONORGESTREL
     Indication: MENORRHAGIA
     Dates: start: 20180222
  2. MIRENA [Suspect]
     Active Substance: LEVONORGESTREL
     Indication: MENOPAUSE
     Dates: start: 20180222
  3. AMBIEN [Concomitant]
     Active Substance: ZOLPIDEM TARTRATE
  4. LAMOTRIGINE. [Concomitant]
     Active Substance: LAMOTRIGINE
  5. VYVANSE [Concomitant]
     Active Substance: LISDEXAMFETAMINE DIMESYLATE
  6. ENSURE ENLIVE [Concomitant]
  7. HYDROXYZINE [Concomitant]
     Active Substance: HYDROXYZINE HYDROCHLORIDE
  8. FERROUS SULFATE. [Concomitant]
     Active Substance: FERROUS SULFATE
  9. VITAMIN B12 [Concomitant]
     Active Substance: CYANOCOBALAMIN

REACTIONS (11)
  - Depression [None]
  - Muscle spasms [None]
  - Paranoia [None]
  - Psychotic disorder [None]
  - Anaemia [None]
  - Weight decreased [None]
  - Anxiety [None]
  - Emotional distress [None]
  - Pain [None]
  - Pelvic pain [None]
  - Stress [None]

NARRATIVE: CASE EVENT DATE: 20180303
